FAERS Safety Report 9819887 (Version 1)
Quarter: 2014Q1

REPORT INFORMATION
  Report Type: Spontaneous
  Country: US (occurrence: None)
  Receive Date: 20140114
  Receipt Date: 20140114
  Transmission Date: 20141002
  Serious: No
  Sender: FDA-Public Use
  Company Number: None

PATIENT
  Age: 36 None
  Sex: Female

DRUGS (1)
  1. COPAXONE [Suspect]
     Route: 048
     Dates: start: 201310, end: 201310

REACTIONS (2)
  - Nausea [None]
  - Pyrexia [None]
